FAERS Safety Report 23560835 (Version 1)
Quarter: 2024Q1

REPORT INFORMATION
  Report Type: Spontaneous
  Country: US (occurrence: None)
  Receive Date: 20240223
  Receipt Date: 20240223
  Transmission Date: 20240409
  Serious: Yes (Disabling)
  Sender: FDA-Public Use
  Company Number: None

PATIENT
  Sex: 0

DRUGS (1)
  1. TESTOSTERONE CYPIONATE\TESTOSTERONE ENANTHATE\TESTOSTERONE PROPIONATE [Suspect]
     Active Substance: TESTOSTERONE CYPIONATE\TESTOSTERONE ENANTHATE\TESTOSTERONE PROPIONATE
     Indication: Hypogonadism
     Dosage: 5 ML W2ICE A WEEK INTRAMUSCULAR ?
     Route: 030
     Dates: start: 20230901, end: 20240221

REACTIONS (5)
  - Cellulitis [None]
  - Infection [None]
  - Product contamination physical [None]
  - Injection site pain [None]
  - Injection site warmth [None]

NARRATIVE: CASE EVENT DATE: 20240127
